FAERS Safety Report 12867465 (Version 1)
Quarter: 2016Q4

REPORT INFORMATION
  Report Type: Spontaneous
  Country: IN (occurrence: IN)
  Receive Date: 20161020
  Receipt Date: 20161020
  Transmission Date: 20170207
  Serious: Yes (Hospitalization)
  Sender: FDA-Public Use
  Company Number: IN-ASTRAZENECA-2016SF09184

PATIENT
  Age: 40 Year
  Sex: Male

DRUGS (6)
  1. ASPIRIN. [Concomitant]
     Active Substance: ASPIRIN
     Dosage: 75.0MG UNKNOWN
  2. BRILINTA [Suspect]
     Active Substance: TICAGRELOR
     Indication: PERCUTANEOUS CORONARY INTERVENTION
     Route: 048
     Dates: start: 20161003
  3. ACE INHIBITOR [Concomitant]
     Active Substance: UNSPECIFIED INGREDIENT
  4. BETA BLOCKER [Concomitant]
     Active Substance: UNSPECIFIED INGREDIENT
  5. CLOPIDOGREL [Concomitant]
     Active Substance: CLOPIDOGREL BISULFATE
  6. STATIN [Concomitant]
     Active Substance: UNSPECIFIED INGREDIENT

REACTIONS (2)
  - Acute myocardial infarction [Unknown]
  - Vascular stent thrombosis [Unknown]
